FAERS Safety Report 25483011 (Version 1)
Quarter: 2025Q2

REPORT INFORMATION
  Report Type: Spontaneous
  Country: US (occurrence: None)
  Receive Date: 20250626
  Receipt Date: 20250626
  Transmission Date: 20250716
  Serious: Yes (Hospitalization)
  Sender: FDA-CTU
  Company Number: None

PATIENT
  Age: 52 Year
  Sex: Female
  Weight: 59.87 kg

DRUGS (3)
  1. CYTARABINE [Suspect]
     Active Substance: CYTARABINE
     Dates: end: 20221106
  2. SPRYCEL [Suspect]
     Active Substance: DASATINIB
     Dates: end: 20221114
  3. METHOTREXATE [Suspect]
     Active Substance: METHOTREXATE
     Dates: end: 20221104

REACTIONS (6)
  - Febrile neutropenia [None]
  - Tachycardia [None]
  - Hypotension [None]
  - Pancytopenia [None]
  - Unevaluable event [None]
  - Dyspnoea [None]

NARRATIVE: CASE EVENT DATE: 20221115
